FAERS Safety Report 5020033-4 (Version None)
Quarter: 2006Q2

REPORT INFORMATION
  Report Type: 
  Country: None (occurrence: None)
  Receive Date: 20060601
  Receipt Date: 20060516
  Transmission Date: 20061013
  Serious: Yes (Hospitalization)
  Sender: FDA-Public Use
  Company Number: 8017077

PATIENT
  Age: 15 Year
  Sex: Male

DRUGS (4)
  1. KEPPRA [Suspect]
     Dosage: 1 DF 2/D PO
     Route: 048
     Dates: start: 20060309
  2. STABLON /00956301/ [Suspect]
     Dosage: 12.5 MG 2/D PO
     Route: 048
  3. DEPAKENE [Concomitant]
  4. ZYPREXA [Concomitant]

REACTIONS (4)
  - HALLUCINATION, VISUAL [None]
  - MIDDLE INSOMNIA [None]
  - SLEEP DISORDER [None]
  - SLEEP TERROR [None]
